FAERS Safety Report 11066661 (Version 1)
Quarter: 2015Q2

REPORT INFORMATION
  Report Type: Spontaneous
  Country: US (occurrence: None)
  Receive Date: 20150416
  Receipt Date: 20150416
  Transmission Date: 20150821
  Serious: Yes (Other)
  Sender: FDA-Public Use
  Company Number: 2013P022069

PATIENT
  Age: 62 Year
  Sex: Female
  Weight: 65.77 kg

DRUGS (5)
  1. LANOXIN [Suspect]
     Active Substance: DIGOXIN
     Indication: ATRIAL FIBRILLATION
     Route: 048
     Dates: start: 20090101
  2. COUMADIN [Concomitant]
     Active Substance: WARFARIN SODIUM
  3. LANOXIN [Suspect]
     Active Substance: DIGOXIN
     Indication: HEART VALVE INCOMPETENCE
     Route: 048
     Dates: start: 20090101
  4. COREG [Concomitant]
     Active Substance: CARVEDILOL
  5. LISINOPRIL. [Concomitant]
     Active Substance: LISINOPRIL

REACTIONS (1)
  - Hallucination, visual [None]

NARRATIVE: CASE EVENT DATE: 20090101
